FAERS Safety Report 8342967-5 (Version None)
Quarter: 2012Q2

REPORT INFORMATION
  Report Type: 
  Country: None (occurrence: None)
  Receive Date: 20120504
  Receipt Date: 20120504
  Transmission Date: 20120825
  Serious: Yes (Death, Life-Threatening, Hospitalization)
  Sender: FDA-Public Use
  Company Number: None

PATIENT
  Age: 80 Year
  Sex: Male
  Weight: 80.7403 kg

DRUGS (5)
  1. PREDNISONE [Concomitant]
  2. DEXAMETHASONE [Concomitant]
  3. DOCETAXEL [Suspect]
     Indication: PROSTATISM
     Dosage: 143 MG IV
     Route: 042
     Dates: start: 20120424
  4. NEULASTA [Concomitant]
  5. VIDAZA [Suspect]
     Indication: PROSTATISM
     Dosage: 286 MG IV
     Route: 042
     Dates: start: 20120419, end: 20120423

REACTIONS (11)
  - DIARRHOEA [None]
  - HYPONATRAEMIA [None]
  - ACIDOSIS [None]
  - BACTERIAL INFECTION [None]
  - RENAL IMPAIRMENT [None]
  - MYOCARDIAL INFARCTION [None]
  - HYPERKALAEMIA [None]
  - FEBRILE NEUTROPENIA [None]
  - BLOOD CULTURE POSITIVE [None]
  - RESPIRATORY DISTRESS [None]
  - HYPOTENSION [None]
